FAERS Safety Report 8255606-9 (Version None)
Quarter: 2012Q2

REPORT INFORMATION
  Report Type: 
  Country: None (occurrence: None)
  Receive Date: 20120403
  Receipt Date: 20120323
  Transmission Date: 20120825
  Serious: Yes (Other)
  Sender: FDA-Public Use
  Company Number: PHHY2012AR026108

PATIENT
  Sex: Female

DRUGS (1)
  1. EXFORGE [Suspect]

REACTIONS (2)
  - BLOOD PRESSURE INCREASED [None]
  - FRACTURE [None]
